FAERS Safety Report 12202636 (Version 2)
Quarter: 2016Q1

REPORT INFORMATION
  Report Type: Spontaneous
  Country: NZ (occurrence: NZ)
  Receive Date: 20160322
  Receipt Date: 20160330
  Transmission Date: 20160526
  Serious: Yes (Hospitalization)
  Sender: FDA-Public Use
  Company Number: NZ-BAXTER-2016BAX011411

PATIENT
  Sex: Male

DRUGS (6)
  1. SODIUM CHLORIDE, 0.9%, SOLUTION FOR INFUSION [Suspect]
     Active Substance: SODIUM CHLORIDE
     Indication: MEDICATION DILUTION
     Route: 042
     Dates: start: 20160304, end: 20160307
  2. VANCOMYCIN [Suspect]
     Active Substance: VANCOMYCIN
     Indication: OSTEOMYELITIS
     Dosage: IN A LV10 DEVICE 10ML/HR OVER 24HRS, 240ML TOTAL VOLUME
     Route: 042
     Dates: start: 20160304, end: 20160307
  3. WATER FOR INJECTION, 100%, SOLUTION FOR INFUSION (BOTTLE) [Suspect]
     Active Substance: WATER
     Route: 042
     Dates: start: 20160309, end: 20160311
  4. VANCOMYCIN [Suspect]
     Active Substance: VANCOMYCIN
     Dosage: IN AN LV5 DEVICE 5ML/HR OVER 24HR 120ML TOTAL VOLUME
     Route: 042
     Dates: start: 20160309, end: 20160311
  5. WATER FOR INJECTION, 100%, SOLUTION FOR INFUSION (BOTTLE) [Suspect]
     Active Substance: WATER
     Indication: MEDICATION DILUTION
     Route: 042
     Dates: start: 20160304, end: 20160307
  6. SODIUM CHLORIDE, 0.9%, SOLUTION FOR INFUSION [Suspect]
     Active Substance: SODIUM CHLORIDE
     Route: 042
     Dates: start: 20160309, end: 20160311

REACTIONS (4)
  - Incorrect drug administration rate [Recovered/Resolved]
  - Drug level increased [Unknown]
  - Malaise [Unknown]
  - Acute kidney injury [Unknown]

NARRATIVE: CASE EVENT DATE: 20160304
